FAERS Safety Report 10038827 (Version 2)
Quarter: 2014Q2

REPORT INFORMATION
  Report Type: Spontaneous
  Country: US (occurrence: US)
  Receive Date: 20140326
  Receipt Date: 20140610
  Transmission Date: 20141212
  Serious: Yes (Death, Life-Threatening, Hospitalization, Disabling, Other)
  Sender: FDA-Public Use
  Company Number: US-GLAXOSMITHKLINE-A1066567A

PATIENT
  Age: 57 Year
  Sex: Male

DRUGS (10)
  1. VOTRIENT [Suspect]
     Indication: BONE CANCER
     Dosage: 400MG TWICE PER DAY
     Route: 048
     Dates: start: 20131220
  2. MAGNESIUM [Concomitant]
  3. SENOKOT [Concomitant]
  4. BENZONATATE [Concomitant]
  5. MORPHINE [Concomitant]
  6. NORTRIPTYLINE [Concomitant]
  7. LANSOPRAZOLE [Concomitant]
  8. PROCHLORPERAZINE [Concomitant]
  9. HYDROCODONE [Concomitant]
  10. TYLENOL [Concomitant]

REACTIONS (2)
  - Respiratory failure [Fatal]
  - Disease progression [Unknown]
